FAERS Safety Report 6182139-6 (Version None)
Quarter: 2009Q2

REPORT INFORMATION
  Report Type: 
  Country: None (occurrence: None)
  Receive Date: 20090507
  Receipt Date: 20090427
  Transmission Date: 20091009
  Serious: Yes (Hospitalization)
  Sender: FDA-Public Use
  Company Number: US-RB-015187-09

PATIENT
  Age: 87 Year
  Sex: Male

DRUGS (3)
  1. MUCINEX [Suspect]
     Dosage: 1 DF TAKEN EVERY OTHER DAY
     Route: 048
     Dates: start: 20090418
  2. DIGOXIN [Concomitant]
  3. CASODEX [Suspect]
     Indication: PROSTATE CANCER

REACTIONS (3)
  - DYSPNOEA [None]
  - MENTAL STATUS CHANGES [None]
  - PNEUMONIA [None]
